FAERS Safety Report 16961629 (Version 2)
Quarter: 2019Q4

REPORT INFORMATION
  Report Type: Spontaneous
  Country: US (occurrence: US)
  Receive Date: 20191025
  Receipt Date: 20191129
  Transmission Date: 20200122
  Serious: Yes (Other)
  Sender: FDA-Public Use
  Company Number: US-PFIZER INC-2019457196

PATIENT
  Age: 64 Year
  Sex: Female

DRUGS (2)
  1. XELJANZ [Suspect]
     Active Substance: TOFACITINIB CITRATE
     Dosage: 10 MG, UNK
     Dates: start: 20191001
  2. XELJANZ [Suspect]
     Active Substance: TOFACITINIB CITRATE
     Dosage: 20 MG, DAILY (2 TABLETS AT ONCE AT THE SAME TIME)
     Dates: start: 20190927

REACTIONS (4)
  - Intentional product misuse [Unknown]
  - Haemorrhage [Unknown]
  - Constipation [Unknown]
  - Drug ineffective [Unknown]
